FAERS Safety Report 5341881-7 (Version None)
Quarter: 2007Q2

REPORT INFORMATION
  Report Type: 
  Country: None (occurrence: None)
  Receive Date: 20070601
  Receipt Date: 20021007
  Transmission Date: 20071010
  Serious: Yes (Hospitalization)
  Sender: FDA-Public Use
  Company Number: US-ROCHE-321329

PATIENT
  Sex: Female

DRUGS (7)
  1. MYCOPHENOLATE MOFETIL [Suspect]
     Indication: SYSTEMIC LUPUS ERYTHEMATOSUS
     Dosage: FOR ONE WEEK.
     Route: 048
     Dates: start: 20020521, end: 20020528
  2. MYCOPHENOLATE MOFETIL [Suspect]
     Route: 048
     Dates: start: 20020528, end: 20020604
  3. MYCOPHENOLATE MOFETIL [Suspect]
     Route: 048
     Dates: start: 20020604, end: 20020612
  4. MYCOPHENOLATE MOFETIL [Suspect]
     Route: 048
     Dates: end: 20020821
  5. MYCOPHENOLATE MOFETIL [Suspect]
     Dosage: DISCONTINUED DUE TO SAE'S
     Route: 048
  6. MYCOPHENOLATE MOFETIL [Suspect]
     Route: 048
  7. CORTICOSTEROIDS [Suspect]
     Indication: SYSTEMIC LUPUS ERYTHEMATOSUS
     Route: 065

REACTIONS (4)
  - BLOOD PRESSURE INCREASED [None]
  - HYPERKALAEMIA [None]
  - OEDEMA [None]
  - SYSTEMIC LUPUS ERYTHEMATOSUS [None]
